FAERS Safety Report 7234289-0 (Version None)
Quarter: 2011Q1

REPORT INFORMATION
  Report Type: 
  Country: None (occurrence: None)
  Receive Date: 20110119
  Receipt Date: 20110113
  Transmission Date: 20110831
  Serious: Yes (Other)
  Sender: FDA-Public Use
  Company Number: CA-AMGEN-CANSP2011002213

PATIENT

DRUGS (2)
  1. ENBREL [Suspect]
     Indication: RHEUMATOID ARTHRITIS
     Dates: start: 20070102
  2. CIPROFLOXACIN [Concomitant]
     Dosage: 500 MG, UNK

REACTIONS (5)
  - RENAL FAILURE [None]
  - INJECTION SITE ERYTHEMA [None]
  - ARTHROPATHY [None]
  - CYSTITIS [None]
  - INJECTION SITE REACTION [None]
